FAERS Safety Report 21486790 (Version 3)
Quarter: 2023Q1

REPORT INFORMATION
  Report Type: Spontaneous
  Country: US (occurrence: US)
  Receive Date: 20221020
  Receipt Date: 20230118
  Transmission Date: 20230418
  Serious: No
  Sender: FDA-Public Use
  Company Number: US-Calliditas-2022CAL00383

PATIENT
  Age: 59 Year
  Sex: Female

DRUGS (12)
  1. TARPEYO [Suspect]
     Active Substance: BUDESONIDE
     Indication: Haematuria
     Dosage: 16MG (4MG CAPSULES) ONCE DAILY
     Route: 048
     Dates: start: 20220607
  2. TACROLIMUS [Concomitant]
     Active Substance: TACROLIMUS
  3. MYCOPHENOLATE MOFETIL [Concomitant]
     Active Substance: MYCOPHENOLATE MOFETIL
  4. RABEPRAZOLE [Concomitant]
     Active Substance: RABEPRAZOLE
  5. BUPROPION [Concomitant]
     Active Substance: BUPROPION
  6. LEXAPRO [Concomitant]
     Active Substance: ESCITALOPRAM OXALATE
  7. ATORVASTATIN [Concomitant]
     Active Substance: ATORVASTATIN
  8. SINGULAIR [Concomitant]
     Active Substance: MONTELUKAST SODIUM
  9. LOSARTAN [Concomitant]
     Active Substance: LOSARTAN
  10. FERROUS SULFATE [Concomitant]
     Active Substance: FERROUS SULFATE
  11. INSULIN NOS [Concomitant]
     Active Substance: INSULIN NOS
  12. LASIX [Suspect]
     Active Substance: FUROSEMIDE
     Indication: Fluid retention

REACTIONS (5)
  - Fluid retention [Recovering/Resolving]
  - Blood potassium decreased [Recovered/Resolved]
  - Muscle spasms [Not Recovered/Not Resolved]
  - Condition aggravated [Recovering/Resolving]
  - Hypertension [Not Recovered/Not Resolved]

NARRATIVE: CASE EVENT DATE: 20220607
